FAERS Safety Report 18044137 (Version 1)
Quarter: 2020Q3

REPORT INFORMATION
  Report Type: Spontaneous
  Country: US (occurrence: US)
  Receive Date: 20200718
  Receipt Date: 20200718
  Transmission Date: 20201103
  Serious: Yes (Life-Threatening, Hospitalization)
  Sender: FDA-Public Use
  Company Number: None

PATIENT
  Age: 47 Year
  Sex: Male

DRUGS (13)
  1. COREG [Concomitant]
     Active Substance: CARVEDILOL
  2. SYMBICORT [Concomitant]
     Active Substance: BUDESONIDE\FORMOTEROL FUMARATE DIHYDRATE
  3. SINGULAIR [Concomitant]
     Active Substance: MONTELUKAST SODIUM
  4. CLONIDINE. [Concomitant]
     Active Substance: CLONIDINE
  5. DUPIXENT [Suspect]
     Active Substance: DUPILUMAB
     Indication: ASTHMA
     Dosage: ?          QUANTITY:1 PFS;OTHER FREQUENCY:EVERY 2 WEEKS;?
     Route: 058
  6. FLONASE [Concomitant]
     Active Substance: FLUTICASONE PROPIONATE
  7. POTASSIUM [Concomitant]
     Active Substance: POTASSIUM
  8. METOLAZONE. [Concomitant]
     Active Substance: METOLAZONE
  9. LOSARTAN. [Concomitant]
     Active Substance: LOSARTAN
  10. ALBUTEROL. [Concomitant]
     Active Substance: ALBUTEROL
  11. ISOSORBIDE MONONITRATE. [Concomitant]
     Active Substance: ISOSORBIDE MONONITRATE
  12. LASIX [Concomitant]
     Active Substance: FUROSEMIDE
  13. SPIRIVA [Concomitant]
     Active Substance: TIOTROPIUM BROMIDE MONOHYDRATE

REACTIONS (1)
  - Hypersensitivity [None]
